FAERS Safety Report 19281534 (Version 5)
Quarter: 2021Q3

REPORT INFORMATION
  Report Type: Other
  Country: LB (occurrence: LB)
  Receive Date: 20210521
  Receipt Date: 20210817
  Transmission Date: 20211014
  Serious: Yes (Death, Hospitalization, Other)
  Sender: FDA-Public Use
  Company Number: LB-ROCHE-2822838

PATIENT
  Sex: Male

DRUGS (1)
  1. TECENTRIQ [Suspect]
     Active Substance: ATEZOLIZUMAB
     Indication: SMALL CELL LUNG CANCER
     Route: 042
     Dates: start: 20210322

REACTIONS (9)
  - Death [Fatal]
  - Malaise [Unknown]
  - Hypotension [Recovered/Resolved]
  - Fatigue [Not Recovered/Not Resolved]
  - Spinal cord compression [Not Recovered/Not Resolved]
  - Hypoxia [Unknown]
  - Spinal disorder [Not Recovered/Not Resolved]
  - Urinary retention [Unknown]
  - Gait inability [Unknown]

NARRATIVE: CASE EVENT DATE: 20210429
